FAERS Safety Report 7730530-6 (Version None)
Quarter: 2011Q3

REPORT INFORMATION
  Report Type: 
  Country: None (occurrence: None)
  Receive Date: 20110906
  Receipt Date: 20110901
  Transmission Date: 20111222
  Serious: Yes (Hospitalization, Other)
  Sender: FDA-Public Use
  Company Number: PHHY2011ZA78014

PATIENT
  Age: 66 Year
  Sex: Female

DRUGS (2)
  1. ZOLEDRONOC ACID [Suspect]
     Dosage: 5 MG
     Route: 042
     Dates: start: 20110807
  2. AZATHIOPRINE [Suspect]
     Dosage: UNK UKN, UNK
     Dates: start: 20110801

REACTIONS (8)
  - TOOTHACHE [None]
  - OESOPHAGEAL PAIN [None]
  - VOMITING [None]
  - GINGIVAL PAIN [None]
  - GINGIVITIS [None]
  - LIVER DISORDER [None]
  - RENAL PAIN [None]
  - MALAISE [None]
